FAERS Safety Report 16595927 (Version 1)
Quarter: 2019Q3

REPORT INFORMATION
  Report Type: Spontaneous
  Country: US (occurrence: US)
  Receive Date: 20190605
  Receipt Date: 20190605
  Transmission Date: 20191004
  Serious: No
  Sender: FDA-Public Use
  Company Number: None

PATIENT

DRUGS (2)
  1. KETAMINE HCL KETAMINE [Suspect]
     Active Substance: KETAMINE HYDROCHLORIDE
  2. KETOROLAC KETOROLAC [Suspect]
     Active Substance: KETOROLAC TROMETHAMINE

REACTIONS (3)
  - Device computer issue [None]
  - Haemorrhage [None]
  - Wrong product administered [None]
